FAERS Safety Report 23543638 (Version 1)
Quarter: 2024Q1

REPORT INFORMATION
  Report Type: Spontaneous
  Country: US (occurrence: None)
  Receive Date: 20240216
  Receipt Date: 20240216
  Transmission Date: 20240410
  Serious: No
  Sender: FDA-Public Use
  Company Number: None

PATIENT
  Age: 64 Year
  Sex: Female

DRUGS (4)
  1. GLATIRAMER ACETATE [Suspect]
     Active Substance: GLATIRAMER ACETATE
     Indication: Multiple sclerosis
     Dosage: 40MG 3 TIMES A WEEK  UNDER THE SKIN ?
     Route: 058
     Dates: start: 202204
  2. LEVAQUIN [Concomitant]
     Active Substance: LEVOFLOXACIN
  3. COREG [Concomitant]
     Active Substance: CARVEDILOL
  4. ELIQUIS [Concomitant]
     Active Substance: APIXABAN

REACTIONS (2)
  - Urinary tract infection [None]
  - Atrial fibrillation [None]

NARRATIVE: CASE EVENT DATE: 20240213
